FAERS Safety Report 8771657 (Version 1)
Quarter: 2012Q4

REPORT INFORMATION
  Report Type: 
  Country: KR (occurrence: KR)
  Receive Date: 20120905
  Receipt Date: 20120905
  Transmission Date: 20130627
  Serious: Yes (Other)
  Sender: FDA-Public Use
  Company Number: KR-ROCHE-1111271

PATIENT
  Sex: Female

DRUGS (2)
  1. RIBAVIRIN [Suspect]
     Indication: HEPATITIS C
     Route: 065
     Dates: start: 200702, end: 200707
  2. PEGINTERFERON ALFA-2B [Suspect]
     Indication: HEPATITIS C
     Route: 065
     Dates: start: 200702, end: 200707

REACTIONS (6)
  - Retinopathy [Not Recovered/Not Resolved]
  - Retinal exudates [Recovering/Resolving]
  - Retinal haemorrhage [Recovering/Resolving]
  - Macular oedema [Recovering/Resolving]
  - Retinal vein occlusion [Unknown]
  - Visual acuity reduced [Not Recovered/Not Resolved]
